FAERS Safety Report 9646649 (Version 2)
Quarter: 2014Q2

REPORT INFORMATION
  Report Type: Spontaneous
  Country: US (occurrence: US)
  Receive Date: 20131026
  Receipt Date: 20140403
  Transmission Date: 20141212
  Serious: No
  Sender: FDA-Public Use
  Company Number: US-009507513-1310USA009138

PATIENT
  Age: 21 Year
  Sex: Female

DRUGS (2)
  1. NUVARING [Suspect]
     Indication: CONTRACEPTION
     Dosage: TWO YEARS AGO, STRENGTH 0.15/.12
     Route: 067
     Dates: start: 2011
  2. NUVARING [Suspect]
     Indication: MENSTRUAL DISORDER

REACTIONS (2)
  - Metrorrhagia [Not Recovered/Not Resolved]
  - Product colour issue [Not Recovered/Not Resolved]
